FAERS Safety Report 14915413 (Version 1)
Quarter: 2018Q2

REPORT INFORMATION
  Report Type: Spontaneous
  Country: US (occurrence: US)
  Receive Date: 20180518
  Receipt Date: 20180518
  Transmission Date: 20180711
  Serious: No
  Sender: FDA-Public Use
  Company Number: US-FRESENIUS KABI-FK201805905

PATIENT

DRUGS (3)
  1. VINCRISTINE [Suspect]
     Active Substance: VINCRISTINE
     Indication: CHEMOTHERAPY
     Route: 065
  2. ETOPOSIDE. [Suspect]
     Active Substance: ETOPOSIDE
     Indication: CHEMOTHERAPY
     Route: 065
  3. DOXORUBICIN HYDROCHLORIDE INJECTION, USP [Suspect]
     Active Substance: DOXORUBICIN HYDROCHLORIDE
     Indication: CHEMOTHERAPY
     Route: 065

REACTIONS (2)
  - Incorrect drug administration rate [Unknown]
  - Adverse event [Unknown]
